FAERS Safety Report 12368401 (Version 1)
Quarter: 2016Q2

REPORT INFORMATION
  Report Type: Report from Study
  Country: CA (occurrence: CA)
  Receive Date: 20160513
  Receipt Date: 20160513
  Transmission Date: 20160815
  Serious: Yes (Other)
  Sender: FDA-Public Use
  Company Number: CA-009507513-1605CAN006203

PATIENT
  Age: 61 Year
  Sex: Female

DRUGS (2)
  1. TEMODAL [Suspect]
     Active Substance: TEMOZOLOMIDE
     Indication: ANAPLASTIC ASTROCYTOMA
     Dosage: UNK
  2. TEMODAL [Suspect]
     Active Substance: TEMOZOLOMIDE
     Dosage: 85 MG, QD, STRENGTH REPORTED AS 20 MG, 5MG
     Route: 048
     Dates: start: 20160505

REACTIONS (3)
  - Cognitive disorder [Unknown]
  - Dementia [Unknown]
  - Nausea [Unknown]

NARRATIVE: CASE EVENT DATE: 201605
